FAERS Safety Report 5004585-6 (Version None)
Quarter: 2006Q2

REPORT INFORMATION
  Report Type: 
  Country: None (occurrence: None)
  Receive Date: 20060512
  Receipt Date: 20060503
  Transmission Date: 20061013
  Serious: Yes (Other)
  Sender: FDA-Public Use
  Company Number: HQWYE198505MAY06

PATIENT
  Sex: Male

DRUGS (1)
  1. ADVIL [Suspect]
     Indication: PAIN
     Dosage: 200 MG, ORAL
     Route: 048

REACTIONS (4)
  - CALCULUS URINARY [None]
  - DIALYSIS [None]
  - LUNG NEOPLASM MALIGNANT [None]
  - NEPHROLITHIASIS [None]
